FAERS Safety Report 4790320-3 (Version None)
Quarter: 2005Q4

REPORT INFORMATION
  Report Type: 
  Country: None (occurrence: None)
  Receive Date: 20051005
  Receipt Date: 20050921
  Transmission Date: 20060501
  Serious: Yes (Hospitalization)
  Sender: FDA-Public Use
  Company Number: USA0509108761

PATIENT
  Age: 59 Year
  Sex: Male

DRUGS (4)
  1. HUMALOG [Suspect]
     Indication: DIABETES MELLITUS NON-INSULIN-DEPENDENT
  2. HUMULIN-HUMAN INSULIN (RDNA) (HU [Suspect]
     Indication: DIABETES MELLITUS NON-INSULIN-DEPENDENT
  3. NPH ILETIN I (BEEF-PORK) [Suspect]
     Indication: DIABETES MELLITUS NON-INSULIN-DEPENDENT
  4. LANTUS [Concomitant]

REACTIONS (5)
  - BLOOD GLUCOSE FLUCTUATION [None]
  - NAUSEA [None]
  - NOSOCOMIAL INFECTION [None]
  - SPINAL FUSION SURGERY [None]
  - STAPHYLOCOCCAL INFECTION [None]
